FAERS Safety Report 6120180-X (Version None)
Quarter: 2009Q1

REPORT INFORMATION
  Report Type: 
  Country: None (occurrence: None)
  Receive Date: 20090316
  Receipt Date: 20090310
  Transmission Date: 20090719
  Serious: No
  Sender: FDA-Public Use
  Company Number: US-ABBOTT-09P-163-0561838-00

PATIENT
  Sex: Female
  Weight: 69.916 kg

DRUGS (8)
  1. TRILIPIX [Suspect]
     Indication: BLOOD CHOLESTEROL INCREASED
     Dates: start: 20090210
  2. LABETALOL HCL [Concomitant]
     Indication: HYPERTENSION
     Dosage: UNKNOWN
  3. LOTENSIN [Concomitant]
     Indication: BLOOD CHOLESTEROL INCREASED
     Dosage: UNKNOWN
  4. STARLIX [Concomitant]
     Indication: DIABETES MELLITUS
     Dosage: UNKNOWN
  5. TEGRETOL [Concomitant]
     Indication: NEUROPATHY PERIPHERAL
     Dosage: UNKNOWN
  6. ZYRTEC [Concomitant]
     Indication: HYPERSENSITIVITY
     Dosage: UNKNOWN
  7. ZYRTEC [Concomitant]
  8. PLAVIX [Concomitant]
     Indication: CARDIAC FAILURE
     Dosage: UNKNOWN

REACTIONS (1)
  - FAECES DISCOLOURED [None]
